FAERS Safety Report 24358541 (Version 1)
Quarter: 2024Q3

REPORT INFORMATION
  Report Type: Spontaneous
  Country: US (occurrence: None)
  Receive Date: 20240921
  Receipt Date: 20240921
  Transmission Date: 20241017
  Serious: Yes (Hospitalization)
  Sender: Public
  Company Number: None

PATIENT
  Age: 7 Year
  Sex: Female
  Weight: 19.6 kg

DRUGS (1)
  1. TRIHEXYPHENIDYL [Suspect]
     Active Substance: TRIHEXYPHENIDYL
     Dosage: 15 ML TID ORAL

REACTIONS (7)
  - Ileus [None]
  - Intestinal obstruction [None]
  - Product formulation issue [None]
  - Product communication issue [None]
  - Product label issue [None]
  - Product dose confusion [None]
  - Product dosage form issue [None]

NARRATIVE: CASE EVENT DATE: 20240911
